FAERS Safety Report 17277439 (Version 1)
Quarter: 2020Q1

REPORT INFORMATION
  Report Type: Spontaneous
  Country: JP (occurrence: JP)
  Receive Date: 20200116
  Receipt Date: 20200116
  Transmission Date: 20200409
  Serious: Yes (Death)
  Sender: FDA-Public Use
  Company Number: JP-TAKEDA-2020TUS002827

PATIENT

DRUGS (1)
  1. ICLUSIG [Suspect]
     Active Substance: PONATINIB
     Indication: LEUKAEMIA
     Dosage: UNK
     Route: 065

REACTIONS (6)
  - Death [Fatal]
  - Adverse event [Unknown]
  - Hepatic function abnormal [Unknown]
  - Rash [Unknown]
  - Liver disorder [Unknown]
  - Thrombocytopenia [Unknown]
